FAERS Safety Report 23052805 (Version 3)
Quarter: 2023Q4

REPORT INFORMATION
  Report Type: Spontaneous
  Country: DE (occurrence: DE)
  Receive Date: 20231011
  Receipt Date: 20231222
  Transmission Date: 20240109
  Serious: Yes (Other)
  Sender: FDA-Public Use
  Company Number: DE-AMGEN-DEUSP2023179614

PATIENT
  Age: 67 Year
  Sex: Female

DRUGS (1)
  1. PROLIA [Suspect]
     Active Substance: DENOSUMAB
     Indication: Osteoporosis postmenopausal
     Dosage: 60 MILLIGRAM, Q6MO
     Route: 065
     Dates: start: 2019, end: 202211

REACTIONS (7)
  - Lumbar vertebral fracture [Unknown]
  - Spinal fracture [Unknown]
  - Venous thrombosis limb [Unknown]
  - Peripheral swelling [Unknown]
  - Myalgia [Unknown]
  - Rash [Unknown]
  - Bone pain [Unknown]

NARRATIVE: CASE EVENT DATE: 20190501
